FAERS Safety Report 25757198 (Version 2)
Quarter: 2025Q4

REPORT INFORMATION
  Report Type: Report from Study
  Country: US (occurrence: US)
  Receive Date: 20250903
  Receipt Date: 20251126
  Transmission Date: 20260118
  Serious: Yes (Other)
  Sender: ELI LILLY AND COMPANY
  Company Number: US-ELI_LILLY_AND_COMPANY-US202507009848

PATIENT
  Age: 83 Year
  Sex: Male
  Weight: 108 kg

DRUGS (4)
  1. KISUNLA [Suspect]
     Active Substance: DONANEMAB-AZBT
     Indication: Dementia
     Dosage: UNK, UNKNOWN (FIRST INFUSION)
     Route: 042
     Dates: start: 20250627
  2. KISUNLA [Suspect]
     Active Substance: DONANEMAB-AZBT
     Dosage: UNK, UNKNOWN (SECOND INFUSION)
     Route: 042
     Dates: start: 20250725
  3. WARFARIN [Suspect]
     Active Substance: WARFARIN
     Indication: Product used for unknown indication
     Dosage: 7.5 MG, DAILY
     Route: 065
  4. GALANTAMINE [Concomitant]
     Active Substance: GALANTAMINE
     Indication: Dementia Alzheimer^s type
     Dosage: UNK, UNKNOWN
     Route: 065

REACTIONS (11)
  - Abnormal behaviour [Unknown]
  - Amyloid related imaging abnormality-microhaemorrhages and haemosiderin deposits [Unknown]
  - Heart rate irregular [Unknown]
  - Circadian rhythm sleep disorder [Unknown]
  - Ejection fraction decreased [Unknown]
  - Confusional state [Recovering/Resolving]
  - Dizziness [Unknown]
  - Muscle spasms [Unknown]
  - Fatigue [Unknown]
  - Nausea [Unknown]
  - Headache [Unknown]
